FAERS Safety Report 12067248 (Version 3)
Quarter: 2016Q1

REPORT INFORMATION
  Report Type: Spontaneous
  Country: US (occurrence: US)
  Receive Date: 20160211
  Receipt Date: 20160310
  Transmission Date: 20160526
  Serious: Yes (Death)
  Sender: FDA-Public Use
  Company Number: US-B.I. PHARMACEUTICALS,INC./RIDGEFIELD-2016-BI-08155BP

PATIENT
  Age: 82 Year
  Sex: Male
  Weight: 68.04 kg

DRUGS (1)
  1. AGGRENOX [Suspect]
     Active Substance: ASPIRIN\DIPYRIDAMOLE
     Indication: THROMBOSIS PROPHYLAXIS
     Dosage: 2 ANZ
     Route: 048
     Dates: start: 2007

REACTIONS (1)
  - Peripheral vascular disorder [Fatal]

NARRATIVE: CASE EVENT DATE: 20160207
